FAERS Safety Report 20629754 (Version 7)
Quarter: 2025Q4

REPORT INFORMATION
  Report Type: Report from Study
  Country: KR (occurrence: KR)
  Receive Date: 20220323
  Receipt Date: 20251211
  Transmission Date: 20260117
  Serious: Yes (Death)
  Sender: ABBVIE
  Company Number: KR-ABBVIE-22K-090-4328184-00

PATIENT
  Age: 88 Year
  Sex: Male
  Weight: 60 kg

DRUGS (41)
  1. VENCLEXTA [Suspect]
     Active Substance: VENETOCLAX
     Indication: Chronic lymphocytic leukaemia
     Dosage: 20 MILLIGRAM
     Route: 048
     Dates: start: 20211127, end: 20211203
  2. VENCLEXTA [Suspect]
     Active Substance: VENETOCLAX
     Indication: Chronic lymphocytic leukaemia
     Dosage: 100 MILLIGRAM
     Route: 048
     Dates: start: 20211207, end: 20211216
  3. VENCLEXTA [Suspect]
     Active Substance: VENETOCLAX
     Indication: Chronic lymphocytic leukaemia
     Dosage: 50 MILLIGRAM
     Route: 048
     Dates: start: 20211217, end: 20211231
  4. VENCLEXTA [Suspect]
     Active Substance: VENETOCLAX
     Indication: Chronic lymphocytic leukaemia
     Dosage: 30 MILLIGRAM
     Route: 048
     Dates: start: 20220113, end: 20220120
  5. VENCLEXTA [Suspect]
     Active Substance: VENETOCLAX
     Indication: Chronic lymphocytic leukaemia
     Dosage: 50 MILLIGRAM
     Route: 048
     Dates: start: 20211204, end: 20211206
  6. VENCLEXTA [Suspect]
     Active Substance: VENETOCLAX
     Indication: Chronic lymphocytic leukaemia
     Dosage: 50 MILLIGRAM
     Route: 048
     Dates: start: 20220121, end: 20220123
  7. VENCLEXTA [Suspect]
     Active Substance: VENETOCLAX
     Indication: Chronic lymphocytic leukaemia
     Dosage: 100 MILLIGRAM
     Route: 048
     Dates: start: 20220124, end: 20220127
  8. VENCLEXTA [Suspect]
     Active Substance: VENETOCLAX
     Indication: Chronic lymphocytic leukaemia
     Dosage: 200 MILLIGRAM
     Route: 048
     Dates: start: 20220128, end: 20220203
  9. VENCLEXTA [Suspect]
     Active Substance: VENETOCLAX
     Indication: Chronic lymphocytic leukaemia
     Dosage: 400 MILLIGRAM
     Route: 048
     Dates: start: 20220204, end: 20220210
  10. VENCLEXTA [Suspect]
     Active Substance: VENETOCLAX
     Indication: Chronic lymphocytic leukaemia
     Dosage: 400 MILLIGRAM
     Route: 048
     Dates: start: 20220211, end: 20220307
  11. ALLOPURINOL [Concomitant]
     Active Substance: ALLOPURINOL
     Indication: Premedication
     Route: 048
     Dates: start: 20211127
  12. PROPRANOLOL HYDROCHLORIDE [Concomitant]
     Active Substance: PROPRANOLOL HYDROCHLORIDE
     Indication: Hypertension
     Dosage: FORM STRENGTH: 40 MILLIGRAMS.
     Route: 048
     Dates: start: 20211127, end: 20220115
  13. NORVASC [Concomitant]
     Active Substance: AMLODIPINE BESYLATE
     Indication: Hypertension
     Dosage: 5 MILLIGRAM
     Route: 048
     Dates: start: 20211127, end: 20220115
  14. Paceta [Concomitant]
     Indication: Pleural effusion
     Dosage: 1VIAL
     Route: 042
     Dates: start: 20211127
  15. AVODART [Concomitant]
     Active Substance: DUTASTERIDE
     Indication: Benign prostatic hyperplasia
     Dosage: SC 0.5,MG
     Route: 048
     Dates: start: 20211127
  16. RABEPRAZOLE SODIUM [Concomitant]
     Active Substance: RABEPRAZOLE SODIUM
     Indication: Gastrooesophageal reflux disease
     Route: 048
     Dates: start: 20211127, end: 20211207
  17. Diazepam daewon [Concomitant]
     Indication: Tremor
     Dosage: 2 MILLIGRAM,  TAB 2MG
     Route: 048
     Dates: start: 20211127
  18. LEVODROPROPIZINE [Concomitant]
     Active Substance: LEVODROPROPIZINE
     Indication: Pleural effusion
     Route: 048
     Dates: start: 20211127
  19. ERDOSTEINE [Concomitant]
     Active Substance: ERDOSTEINE
     Indication: Pleural effusion
     Route: 048
     Dates: start: 20220225
  20. ERDOSTEINE [Concomitant]
     Active Substance: ERDOSTEINE
     Indication: Pleural effusion
     Dosage: 900 MILLIGRAM
     Route: 048
     Dates: start: 20211127
  21. Ambro [Concomitant]
     Indication: Pleural effusion
     Dosage: 3 AMPOULE
     Route: 042
     Dates: start: 20211127, end: 20211201
  22. BENZYDAMINE HYDROCHLORIDE [Concomitant]
     Active Substance: BENZYDAMINE HYDROCHLORIDE
     Indication: Product used for unknown indication
     Dosage: 15 MILLILITER
     Route: 060
     Dates: start: 20211127
  23. BARACLUDE [Concomitant]
     Active Substance: ENTECAVIR
     Indication: Antiviral prophylaxis
     Dosage: 0.5 MILLIGRAM
     Route: 048
     Dates: start: 20220113
  24. Tacenol 8 hours er [Concomitant]
     Indication: Premedication
     Dosage: L 8HOURS ER TAB 650 MILLIGRAM
     Route: 048
     Dates: start: 20220113, end: 20220113
  25. DEXAMETHASONE [Concomitant]
     Active Substance: DEXAMETHASONE
     Indication: Premedication
     Dosage: E CHOONGWAE INJ 5MG/ML, 1 AMPULE
     Route: 042
     Dates: start: 20220113, end: 20220113
  26. Chlorpheniramine maleate huons [Concomitant]
     Indication: Premedication
     Dosage: 1 AMPOULE
     Route: 042
     Dates: start: 20220113, end: 20220113
  27. REBAMIPIDE [Concomitant]
     Active Substance: REBAMIPIDE
     Indication: Gastrooesophageal reflux disease
     Dosage: 300 MILLIGRAM
     Route: 048
     Dates: start: 20220113
  28. SPORANOX [Concomitant]
     Active Substance: ITRACONAZOLE
     Indication: Pleural effusion
     Route: 048
     Dates: start: 20220113
  29. SODIUM BICARBONATE [Concomitant]
     Active Substance: SODIUM BICARBONATE
     Indication: Premedication
     Dosage: E DAIHAN INJ 8.4% 20ML, 2 AMPULES
     Route: 042
     Dates: start: 20220210, end: 20220210
  30. Thrupass ODT [Concomitant]
     Indication: Benign prostatic hyperplasia
     Dosage: 8 MILLIGRAM
     Route: 060
     Dates: start: 20211127
  31. MABTHERA [Concomitant]
     Active Substance: RITUXIMAB
     Indication: Chemotherapy
     Dosage: 765 MILLIGRAM
     Route: 048
     Dates: start: 20220210, end: 20220210
  32. MABTHERA [Concomitant]
     Active Substance: RITUXIMAB
     Indication: Chemotherapy
     Dosage: 765 MILLIGRAM
     Route: 048
     Dates: start: 20220211
  33. Magmil s [Concomitant]
     Indication: Chemotherapy
     Dosage: 750 MILLIGRAM
     Route: 048
     Dates: start: 20220211
  34. Hana codeine phosphate [Concomitant]
     Indication: Pleural effusion
     Dosage: 60 MILLIGRAM
     Route: 048
     Dates: start: 20211127
  35. Coldaewon cough [Concomitant]
     Indication: Pleural effusion
     Route: 048
     Dates: start: 20220305
  36. OXYCODONE HYDROCHLORIDE [Concomitant]
     Active Substance: OXYCODONE HYDROCHLORIDE
     Indication: Pleural effusion
     Route: 048
     Dates: start: 20220225
  37. FENTANYL [Concomitant]
     Active Substance: FENTANYL
     Indication: Pleural effusion
     Dosage: C D-TRANS PATCH 12MCG/H 5.25? ?
     Route: 062
     Dates: start: 20220305, end: 20220307
  38. Ubacsin [Concomitant]
     Indication: Pleural effusion
     Dosage: 8VIALS, 1.5 G
     Route: 042
     Dates: start: 20220306, end: 20220306
  39. SULFAMETHOXAZOLE\TRIMETHOPRIM [Concomitant]
     Active Substance: SULFAMETHOXAZOLE\TRIMETHOPRIM
     Indication: Pleural effusion
     Dosage: 1 TABLET
     Route: 048
     Dates: start: 20220113
  40. MINIRIN [Concomitant]
     Active Substance: DESMOPRESSIN ACETATE
     Indication: Benign prostatic hyperplasia
     Dosage: 0.1 MILLIGRAM
     Route: 048
     Dates: start: 20211127, end: 20211207
  41. Dulackhan easy [Concomitant]
     Indication: Constipation prophylaxis
     Dosage: 2 SACHET
     Route: 048
     Dates: start: 20211127

REACTIONS (1)
  - COVID-19 pneumonia [Fatal]

NARRATIVE: CASE EVENT DATE: 20220307
